FAERS Safety Report 9882397 (Version 2)
Quarter: 2014Q1

REPORT INFORMATION
  Report Type: Spontaneous
  Country: BE (occurrence: BE)
  Receive Date: 20140207
  Receipt Date: 20140326
  Transmission Date: 20141002
  Serious: Yes (Life-Threatening, Hospitalization)
  Sender: FDA-Public Use
  Company Number: BE-GLAXOSMITHKLINE-B0967189A

PATIENT
  Age: 36 Year
  Sex: Male

DRUGS (5)
  1. LAMBIPOL [Suspect]
     Indication: BIPOLAR I DISORDER
     Dosage: 200MG TWICE PER DAY
     Route: 048
     Dates: start: 20090727, end: 20140205
  2. TEMESTA [Concomitant]
  3. ANTIBIOTICS [Concomitant]
  4. VENLAFAXINE [Concomitant]
     Indication: MAJOR DEPRESSION
     Route: 048
     Dates: start: 20071009
  5. LORAZEPAM [Concomitant]
     Route: 048

REACTIONS (1)
  - Suicide attempt [Recovered/Resolved with Sequelae]
